FAERS Safety Report 21606775 (Version 2)
Quarter: 2023Q1

REPORT INFORMATION
  Report Type: Spontaneous
  Country: US (occurrence: US)
  Receive Date: 20221117
  Receipt Date: 20230119
  Transmission Date: 20230418
  Serious: Yes (Hospitalization, Other)
  Sender: FDA-Public Use
  Company Number: US-BRISTOL-MYERS SQUIBB COMPANY-2022-138389

PATIENT
  Age: 75 Year
  Sex: Male

DRUGS (2)
  1. REVLIMID [Suspect]
     Active Substance: LENALIDOMIDE
     Indication: Plasma cell myeloma
     Dosage: FREQUENCY: ONE CAPSULE BY MOUTH DAILY X 21 DAYS, THEN OFF 7 DAYS
     Route: 048
     Dates: start: 20210507, end: 20221028
  2. REVLIMID [Suspect]
     Active Substance: LENALIDOMIDE
     Dosage: FREQUENCY: ONE CAPSULE BY MOUTH DAILY X 21 DAYS, THEN OFF 7 DAYS
     Route: 048
     Dates: start: 20221230

REACTIONS (2)
  - Infection [Unknown]
  - Hip fracture [Unknown]
